FAERS Safety Report 24771477 (Version 2)
Quarter: 2025Q1

REPORT INFORMATION
  Report Type: Spontaneous
  Country: BR (occurrence: BR)
  Receive Date: 20241224
  Receipt Date: 20250117
  Transmission Date: 20250408
  Serious: Yes (Other)
  Sender: DR REDDYS
  Company Number: BR-Dr. Reddys Brasil-SPO/BRA/24/0018545

PATIENT
  Age: 32 Year
  Weight: 66 kg

DRUGS (8)
  1. METOPROLOL SUCCINATE [Suspect]
     Active Substance: METOPROLOL SUCCINATE
     Indication: Hypothyroidism
     Dosage: 30 TABLETS (2 TABLET A DAY)
     Route: 048
     Dates: start: 20241115
  2. METOPROLOL SUCCINATE [Suspect]
     Active Substance: METOPROLOL SUCCINATE
     Indication: Anxiety
  3. Pondera XR [Concomitant]
     Indication: Product used for unknown indication
     Route: 065
  4. Pondera XR [Concomitant]
     Route: 065
  5. Pondera XR [Concomitant]
     Route: 065
  6. PURAN [Concomitant]
     Active Substance: LEVOTHYROXINE SODIUM
     Indication: Product used for unknown indication
     Route: 065
  7. Venaflon Teuto [Concomitant]
     Indication: Product used for unknown indication
     Route: 065
  8. MOLIERI [Concomitant]
     Indication: Product used for unknown indication
     Route: 065

REACTIONS (3)
  - Arrhythmia [Unknown]
  - Drug ineffective [Unknown]
  - Product physical consistency issue [Unknown]
